FAERS Safety Report 6236814-5 (Version None)
Quarter: 2009Q2

REPORT INFORMATION
  Report Type: 
  Country: None (occurrence: None)
  Receive Date: 20090619
  Receipt Date: 20090608
  Transmission Date: 20091009
  Serious: Yes (Hospitalization)
  Sender: FDA-Public Use
  Company Number: IT-AMGEN-UK257777

PATIENT
  Sex: Male

DRUGS (4)
  1. PANITUMUMAB [Suspect]
     Indication: COLORECTAL CANCER
     Route: 042
     Dates: start: 20071108, end: 20071204
  2. FLUOROURACIL [Concomitant]
     Route: 065
     Dates: start: 20071231
  3. LEUCOVORIN CALCIUM [Concomitant]
     Route: 065
     Dates: start: 20071231
  4. OXALIPLATIN [Concomitant]
     Route: 065
     Dates: start: 20071231

REACTIONS (4)
  - DIARRHOEA [None]
  - NEUTROPENIA [None]
  - RASH [None]
  - STOMATITIS [None]
